FAERS Safety Report 5401056-X (Version None)
Quarter: 2007Q3

REPORT INFORMATION
  Report Type: 
  Country: None (occurrence: None)
  Receive Date: 20070731
  Receipt Date: 20070727
  Transmission Date: 20080115
  Serious: Yes (Life-Threatening, Other)
  Sender: FDA-Public Use
  Company Number: DEWYE833212JUN07

PATIENT
  Sex: Female
  Weight: 70 kg

DRUGS (3)
  1. VENLAFAXINE HCL [Suspect]
     Indication: DEPRESSION
     Dosage: 150 MG DAILY
     Route: 048
     Dates: start: 19991001
  2. VENLAFAXINE HCL [Suspect]
     Dosage: 75 MG DAILY
     Route: 048
  3. VENLAFAXINE HCL [Suspect]
     Dosage: 150 MD DAILY
     Route: 048

REACTIONS (1)
  - RECTAL CANCER METASTATIC [None]
